FAERS Safety Report 16723018 (Version 2)
Quarter: 2019Q3

REPORT INFORMATION
  Report Type: Spontaneous
  Country: US (occurrence: US)
  Receive Date: 20190821
  Receipt Date: 20190828
  Transmission Date: 20191005
  Serious: No
  Sender: FDA-Public Use
  Company Number: US-ELI_LILLY_AND_COMPANY-US201907016905

PATIENT
  Sex: Female

DRUGS (2)
  1. HUMATROPE [Suspect]
     Active Substance: SOMATROPIN
     Indication: BODY HEIGHT BELOW NORMAL
     Dosage: 1 MG, UNKNOWN
     Route: 058
     Dates: start: 20190729
  2. BACITRACIN ZINC;HYDROCORTISONE;NEOMYCIN SULFA [Concomitant]
     Indication: PRODUCT USED FOR UNKNOWN INDICATION
     Dosage: UNK, UNKNOWN
     Route: 065

REACTIONS (7)
  - Injury associated with device [Unknown]
  - Incorrect dose administered [Unknown]
  - Anxiety [Recovered/Resolved]
  - Fear of injection [Unknown]
  - Ear infection [Recovering/Resolving]
  - Product dose omission [Unknown]
  - Injection site pain [Unknown]
